FAERS Safety Report 7283716-1 (Version None)
Quarter: 2011Q1

REPORT INFORMATION
  Report Type: 
  Country: None (occurrence: None)
  Receive Date: 20110209
  Receipt Date: 20100518
  Transmission Date: 20110831
  Serious: Yes (Hospitalization, Other)
  Sender: FDA-Public Use
  Company Number: TW-JNJFOC-20110106157

PATIENT
  Age: 44 Year
  Sex: Male

DRUGS (35)
  1. HALOPERIDOL [Suspect]
     Route: 048
  2. VALPROATE SODIUM [Suspect]
     Indication: AGITATION
     Route: 065
  3. VALPROATE SODIUM [Suspect]
     Route: 065
  4. CLONAZEPAM [Suspect]
     Route: 065
  5. ZOTEPINE [Suspect]
     Route: 065
  6. HALOPERIDOL [Suspect]
     Route: 030
  7. VALPROATE SODIUM [Suspect]
     Route: 065
  8. HALOPERIDOL [Suspect]
     Route: 048
  9. VALPROATE SODIUM [Suspect]
     Route: 065
  10. VALPROATE SODIUM [Suspect]
     Route: 065
  11. VALPROATE SODIUM [Suspect]
     Route: 065
  12. VALPROATE SODIUM [Suspect]
     Route: 065
  13. CLONAZEPAM [Suspect]
     Route: 065
  14. ZOTEPINE [Suspect]
     Indication: AGITATION
     Route: 065
  15. HALOPERIDOL [Suspect]
     Dosage: FOR 3 DAYS
     Route: 048
  16. HALOPERIDOL [Suspect]
     Indication: HALLUCINATION, AUDITORY
     Route: 048
  17. HALOPERIDOL [Suspect]
     Route: 030
  18. CLONAZEPAM [Suspect]
     Indication: AFFECT LABILITY
     Route: 065
  19. HALOPERIDOL [Suspect]
     Route: 030
  20. VALPROATE SODIUM [Suspect]
     Indication: AFFECT LABILITY
     Route: 065
  21. VALPROATE SODIUM [Suspect]
     Indication: HALLUCINATION, AUDITORY
     Route: 065
  22. CLONAZEPAM [Suspect]
     Indication: HALLUCINATION, AUDITORY
     Route: 065
  23. CLONAZEPAM [Suspect]
     Route: 065
  24. HALOPERIDOL [Suspect]
     Route: 048
  25. CLONAZEPAM [Suspect]
     Indication: AGITATION
     Route: 065
  26. CLONAZEPAM [Suspect]
     Route: 065
  27. HALOPERIDOL [Suspect]
     Indication: AFFECT LABILITY
     Dosage: FOR 3 DAYS
     Route: 048
  28. HALOPERIDOL [Suspect]
     Route: 048
  29. VALPROATE SODIUM [Suspect]
     Route: 065
  30. VALPROATE SODIUM [Suspect]
     Route: 065
  31. CLONAZEPAM [Suspect]
     Route: 065
  32. CLONAZEPAM [Suspect]
     Route: 065
  33. HALOPERIDOL [Suspect]
     Indication: AGITATION
     Route: 048
  34. HALOPERIDOL [Suspect]
     Dosage: FOR 3 DAYS
     Route: 048
  35. VALPROATE SODIUM [Suspect]
     Route: 065

REACTIONS (5)
  - HYPERHIDROSIS [None]
  - EXTRAPYRAMIDAL DISORDER [None]
  - HEPATIC ENZYME INCREASED [None]
  - DELIRIUM [None]
  - ENCEPHALOPATHY [None]
